FAERS Safety Report 4685422-6 (Version None)
Quarter: 2005Q2

REPORT INFORMATION
  Report Type: 
  Country: None (occurrence: None)
  Receive Date: 20050608
  Receipt Date: 20050525
  Transmission Date: 20051028
  Serious: Yes (Hospitalization)
  Sender: FDA-Public Use
  Company Number: IT-MERCK-0505ITA00022

PATIENT
  Age: 50 Year
  Sex: Male

DRUGS (4)
  1. VIOXX [Suspect]
     Indication: ARTHRALGIA
     Route: 048
     Dates: start: 20030601, end: 20030601
  2. CYCLOSPORINE [Concomitant]
     Indication: RENAL TRANSPLANT
     Route: 048
  3. CORTICOSTEROIDS (UNSPECIFIED) [Concomitant]
     Indication: RENAL TRANSPLANT
     Route: 065
  4. RAMIPRIL [Concomitant]
     Indication: HYPERTENSION
     Route: 048

REACTIONS (1)
  - COLITIS ISCHAEMIC [None]
